FAERS Safety Report 12237112 (Version 1)
Quarter: 2016Q2

REPORT INFORMATION
  Report Type: Report from Study
  Country: US (occurrence: US)
  Receive Date: 20160405
  Receipt Date: 20160405
  Transmission Date: 20160815
  Serious: Yes (Hospitalization)
  Sender: FDA-Public Use
  Company Number: US-AMGEN-USACT2016039330

PATIENT
  Age: 68 Year
  Sex: Female
  Weight: 68.2 kg

DRUGS (29)
  1. GLUCOPHAGE [Concomitant]
     Active Substance: METFORMIN HYDROCHLORIDE
     Dosage: 1000 MG, BID
     Route: 048
     Dates: start: 20130603
  2. DILAUDID [Concomitant]
     Active Substance: HYDROMORPHONE HYDROCHLORIDE
     Indication: PAIN
     Dosage: 2 MG, EVERY FOUR HOURS AS NEEDED
     Route: 048
  3. CALCIUM CARBONATE AND VITAMIN D [Concomitant]
     Dosage: 1 UNK, QD
     Route: 048
  4. AMG 145 [Suspect]
     Active Substance: EVOLOCUMAB
     Indication: HYPERCHOLESTEROLAEMIA
     Dosage: 420 MG, QMO
     Route: 058
     Dates: start: 20150714
  5. DITROPAN [Concomitant]
     Active Substance: OXYBUTYNIN CHLORIDE
     Dosage: 10 MG, QD
     Route: 048
     Dates: start: 20140416
  6. EFFEXOR [Concomitant]
     Active Substance: VENLAFAXINE HYDROCHLORIDE
     Dosage: 150 MG, QD
     Route: 048
     Dates: start: 20140916
  7. MOTRIN [Concomitant]
     Active Substance: IBUPROFEN
     Indication: PAIN
     Dosage: 600 MG, EVERY EIGHT HOURS AS NECESSARY WITH FOOD
  8. SENNA S [Concomitant]
     Active Substance: DOCUSATE SODIUM\SENNA LEAF
     Indication: CONSTIPATION
     Dosage: 8.6-50 MG EVERY DAY AS NECESSARY
     Route: 048
  9. SYNTHROID [Concomitant]
     Active Substance: LEVOTHYROXINE SODIUM
     Dosage: 75 MUG, QD BEFORE BREAKFAST
     Route: 048
     Dates: start: 20140316
  10. PRILOSEC [Concomitant]
     Active Substance: OMEPRAZOLE MAGNESIUM
     Dosage: 20 MG, BID
     Route: 048
     Dates: start: 20160103, end: 20160109
  11. HYDROMORPHONE [Concomitant]
     Active Substance: HYDROMORPHONE
     Dosage: 2 MG, AS NECESSARY
     Route: 048
     Dates: start: 20160109
  12. LIPITOR [Concomitant]
     Active Substance: ATORVASTATIN CALCIUM
     Dosage: 20 MG, QD
     Route: 048
     Dates: start: 20151015
  13. NITROSTAT [Concomitant]
     Active Substance: NITROGLYCERIN
     Indication: CHEST PAIN
     Dosage: 0.4 MG, AS NECESSARY
     Route: 060
     Dates: start: 20070801
  14. PANTOPRAZOLE [Concomitant]
     Active Substance: PANTOPRAZOLE SODIUM
     Dosage: 40 MG, BID
     Route: 048
     Dates: start: 20160109
  15. PREFILLED AUTOINJECTOR/PEN [Suspect]
     Active Substance: DEVICE
     Indication: HYPERCHOLESTEROLAEMIA
     Dosage: UNK
     Route: 058
     Dates: start: 20150714
  16. MYCOSTATIN [Concomitant]
     Active Substance: NYSTATIN
     Dosage: 100004 UNK, BID
     Route: 061
     Dates: start: 20110503
  17. ASPIRIN                            /00002701/ [Concomitant]
     Active Substance: ASPIRIN
     Dosage: 162 MG, QD WITH FOOD
     Route: 048
     Dates: start: 20071023
  18. COLACE [Concomitant]
     Active Substance: DOCUSATE SODIUM
     Dosage: 100 MG, BID
     Route: 048
     Dates: start: 20160103
  19. DULCOLAX (BISACODYL) [Concomitant]
     Active Substance: BISACODYL
     Dosage: 10 MG, QD
     Route: 048
     Dates: start: 20160108
  20. BENADRYL [Concomitant]
     Active Substance: DIPHENHYDRAMINE HYDROCHLORIDE
     Indication: HYPERSENSITIVITY
  21. TRIAMCINOLONE ACETONIDE. [Concomitant]
     Active Substance: TRIAMCINOLONE ACETONIDE
     Dosage: UNK
     Dates: start: 20060612, end: 20070924
  22. ACETAMINOFEN [Concomitant]
     Active Substance: ACETAMINOPHEN
     Dosage: 650 MG, BID AS NECESSARY
     Route: 048
     Dates: start: 20160109
  23. BENADRYL [Concomitant]
     Active Substance: DIPHENHYDRAMINE HYDROCHLORIDE
     Indication: PRURITUS
     Dosage: 12.5 MG,EVERY SIX HOURS AS NECESSARY
     Route: 048
  24. CALCIUM CARBONATE. [Concomitant]
     Active Substance: CALCIUM CARBONATE
     Dosage: 400-600 MG, QD
     Route: 048
     Dates: start: 2008
  25. ZESTRIL [Concomitant]
     Active Substance: LISINOPRIL
     Dosage: 5 MG, QD
     Route: 048
     Dates: start: 20131220
  26. LOPRESSOR [Concomitant]
     Active Substance: METOPROLOL TARTRATE
     Dosage: 25 MG, BID
     Route: 048
     Dates: start: 20150619
  27. ATIVAN [Concomitant]
     Active Substance: LORAZEPAM
     Dosage: 0.5 MG, AS NECESSARY
     Route: 048
     Dates: start: 20160106, end: 20160201
  28. MILK OF MAGNESIA [Concomitant]
     Active Substance: MAGNESIUM HYDROXIDE
     Indication: CONSTIPATION
     Dosage: 30 ML, AT BED TIME AS NECESSARY
     Route: 048
  29. CELESTONE [Concomitant]
     Active Substance: BETAMETHASONE
     Dosage: UNK
     Dates: start: 20081028

REACTIONS (1)
  - Colitis [Recovered/Resolved]

NARRATIVE: CASE EVENT DATE: 20160130
